FAERS Safety Report 11003992 (Version 1)
Quarter: 2015Q2

REPORT INFORMATION
  Report Type: Spontaneous
  Country: US (occurrence: None)
  Receive Date: 20150407
  Receipt Date: 20150407
  Transmission Date: 20150821
  Serious: Yes (Hospitalization)
  Sender: FDA-Public Use
  Company Number: FK201501643

PATIENT
  Age: 66 Year
  Sex: Male

DRUGS (5)
  1. DOXORUBICIN [Suspect]
     Active Substance: DOXORUBICIN
     Indication: BURKITT^S LYMPHOMA
  2. VINCRISTINE (VINCRISTINE) (VINCRISTINE) [Suspect]
     Active Substance: VINCRISTINE
     Indication: BURKITT^S LYMPHOMA
  3. RITUXIMAB [Concomitant]
     Active Substance: RITUXIMAB
  4. CYCLOSPORINE. [Suspect]
     Active Substance: CYCLOSPORINE
     Indication: BURKITT^S LYMPHOMA
  5. DEXAMETHASONE. [Suspect]
     Active Substance: DEXAMETHASONE
     Indication: BURKITT^S LYMPHOMA

REACTIONS (8)
  - Infection [None]
  - Pneumonia [None]
  - Failure to thrive [None]
  - Upper respiratory tract infection [None]
  - Epstein-Barr viraemia [None]
  - Herpes zoster [None]
  - Cytomegalovirus chorioretinitis [None]
  - Hodgkin^s disease [None]
